FAERS Safety Report 15235636 (Version 1)
Quarter: 2018Q3

REPORT INFORMATION
  Report Type: Spontaneous
  Country: US (occurrence: US)
  Receive Date: 20180709
  Receipt Date: 20180709
  Transmission Date: 20181010
  Serious: No
  Sender: FDA-Public Use
  Company Number: None

PATIENT
  Sex: Female
  Weight: 94.05 kg

DRUGS (5)
  1. VITAMIN D3 [Concomitant]
     Active Substance: CHOLECALCIFEROL
  2. SYNTHROID [Concomitant]
     Active Substance: LEVOTHYROXINE SODIUM
  3. VENLAFAXINE HYDROCHLORIDE EXTENDED?RELEASE CAPSULES USP 75MG [Suspect]
     Active Substance: VENLAFAXINE HYDROCHLORIDE
     Indication: ANXIETY
     Dosage: ?          QUANTITY:1 DF DOSAGE FORM;OTHER FREQUENCY:3 CAP X1;?
     Route: 048
     Dates: start: 20180606, end: 20180707
  4. INVOKANA [Concomitant]
     Active Substance: CANAGLIFLOZIN
  5. METFORMIN [Concomitant]
     Active Substance: METFORMIN HYDROCHLORIDE

REACTIONS (11)
  - Panic attack [None]
  - Crying [None]
  - Hyperhidrosis [None]
  - Anxiety [None]
  - Halo vision [None]
  - Heart rate increased [None]
  - Dizziness [None]
  - Product quality issue [None]
  - Headache [None]
  - Insomnia [None]
  - Disturbance in attention [None]
